FAERS Safety Report 4814203-5 (Version None)
Quarter: 2005Q4

REPORT INFORMATION
  Report Type: 
  Country: None (occurrence: None)
  Receive Date: 20051028
  Receipt Date: 20051025
  Transmission Date: 20060501
  Serious: Yes (Life-Threatening, Other)
  Sender: FDA-Public Use
  Company Number: 2005CG01786

PATIENT
  Age: 45 Year
  Sex: Male

DRUGS (2)
  1. XYLOCAINE [Suspect]
     Indication: ANAESTHESIA
     Route: 065
     Dates: start: 20041101, end: 20041101
  2. ALTIM [Suspect]
     Dates: start: 20041101, end: 20041101

REACTIONS (10)
  - ANAESTHETIC COMPLICATION [None]
  - ANOSMIA [None]
  - CARDIAC ARREST [None]
  - DIZZINESS [None]
  - FAECAL INCONTINENCE [None]
  - INCONTINENCE [None]
  - QUADRIPARESIS [None]
  - SEXUAL DYSFUNCTION [None]
  - SYNCOPE [None]
  - URINARY INCONTINENCE [None]
